FAERS Safety Report 6215164-7 (Version None)
Quarter: 2009Q2

REPORT INFORMATION
  Report Type: 
  Country: None (occurrence: None)
  Receive Date: 20090601
  Receipt Date: 20081121
  Transmission Date: 20091009
  Serious: No
  Sender: FDA-Public Use
  Company Number: 281698

PATIENT
  Age: 54 Year
  Sex: Female

DRUGS (1)
  1. ACTIVELLA [Suspect]
     Indication: HOT FLUSH
     Dosage: 1 TAB, QD, ORAL
     Route: 048
     Dates: start: 20081114

REACTIONS (1)
  - MUSCLE SPASMS [None]
